FAERS Safety Report 5932781-X (Version None)
Quarter: 2008Q4

REPORT INFORMATION
  Report Type: 
  Country: None (occurrence: None)
  Receive Date: 20081028
  Receipt Date: 20081021
  Transmission Date: 20090506
  Serious: Yes (Hospitalization)
  Sender: FDA-Public Use
  Company Number: B0527363A

PATIENT
  Age: 81 Year
  Sex: Female

DRUGS (8)
  1. SERETIDE [Suspect]
     Indication: ASTHMA
     Dosage: 2PUFF TWICE PER DAY
     Route: 055
  2. ASPIRIN [Concomitant]
     Route: 065
  3. IRON TABLETS [Concomitant]
     Route: 065
  4. SIMVASTATIN [Concomitant]
     Route: 065
  5. PERINDOPRIL [Concomitant]
     Route: 065
  6. AMLODIPINE [Concomitant]
     Route: 065
  7. ADCAL [Concomitant]
     Route: 065
  8. RISEDRONATE SODIUM [Concomitant]
     Route: 065

REACTIONS (4)
  - CONTUSION [None]
  - FALL [None]
  - HUMERUS FRACTURE [None]
  - PRODUCTIVE COUGH [None]
